FAERS Safety Report 8441760-2 (Version None)
Quarter: 2012Q2

REPORT INFORMATION
  Report Type: 
  Country: None (occurrence: None)
  Receive Date: 20120615
  Receipt Date: 20120326
  Transmission Date: 20120825
  Serious: No
  Sender: FDA-Public Use
  Company Number: US-NOVEN-12US004375

PATIENT
  Age: 28 Year
  Sex: Female

DRUGS (1)
  1. DAYTRANA [Suspect]
     Indication: ATTENTION DEFICIT/HYPERACTIVITY DISORDER
     Dosage: 1 PATCH DAILY
     Route: 062
     Dates: start: 20120323, end: 20120324

REACTIONS (4)
  - PANIC REACTION [None]
  - DRUG PRESCRIBING ERROR [None]
  - ANXIETY [None]
  - OFF LABEL USE [None]
